FAERS Safety Report 23137631 (Version 1)
Quarter: 2023Q4

REPORT INFORMATION
  Report Type: Spontaneous
  Country: CO (occurrence: CO)
  Receive Date: 20231102
  Receipt Date: 20231102
  Transmission Date: 20240110
  Serious: Yes (Death, Other)
  Sender: FDA-Public Use
  Company Number: CO-BAXTER-2023BAX034351

PATIENT
  Age: 71 Year
  Sex: Female
  Weight: 44.3 kg

DRUGS (12)
  1. DIANEAL [Suspect]
     Active Substance: CALCIUM CHLORIDE\DEXTROSE\MAGNESIUM CHLORIDE\SODIUM CHLORIDE\SODIUM LACTATE
     Indication: Peritoneal dialysis
     Dosage: 2L (LITERS) (INTERLEAVED WET NIGHT)
     Route: 033
     Dates: start: 202206
  2. DIANEAL [Suspect]
     Active Substance: CALCIUM CHLORIDE\DEXTROSE\MAGNESIUM CHLORIDE\SODIUM CHLORIDE\SODIUM LACTATE
     Indication: Peritoneal dialysis
     Dosage: 2L (LITERS), 3 REFLILLS
     Route: 033
     Dates: start: 202206
  3. ACETAMINOPHEN [Concomitant]
     Active Substance: ACETAMINOPHEN
     Dosage: 1 TABLET, EVERY 24 HOURS, 30 DAYS
     Route: 048
  4. FOLIC ACID [Concomitant]
     Active Substance: FOLIC ACID
     Dosage: 1 TABLET, EVERY 24 HOURS, 30 DAYS
     Route: 048
  5. ATORVASTATIN CALCIUM [Concomitant]
     Active Substance: ATORVASTATIN CALCIUM
     Dosage: 1 TABLET, EVERY 24 HOURS, 30 DAYS
     Route: 048
  6. CALCIUM PANTOTHENATE\CYANOCOBALAMIN\NIACINAMIDE\PYRIDOXINE HYDROCHLORI [Concomitant]
     Active Substance: CALCIUM PANTOTHENATE\CYANOCOBALAMIN\NIACINAMIDE\PYRIDOXINE HYDROCHLORIDE\RIBOFLAVIN\THIAMINE MONONIT
     Dosage: 1 TABLET, EVERY 24 HOURS, 30 DAYS
     Route: 048
     Dates: start: 20230905
  7. GENTAMICIN [Concomitant]
     Active Substance: GENTAMICIN
     Dosage: 1 TUBE, EVERY 30 DAYS FOR 30 DAYS
     Route: 061
  8. ERYTHROPOIETIN [Concomitant]
     Active Substance: ERYTHROPOIETIN
     Dosage: 1 AMPOULE 3 DAYS A WEEK FOR 30 DAYS
     Route: 058
  9. FUROSEMIDE [Concomitant]
     Active Substance: FUROSEMIDE
     Dosage: 1 TABLET EVERY 24 HOURS FOR 30 DAYS
     Route: 048
  10. ALUMINUM HYDROXIDE [Concomitant]
     Active Substance: ALUMINUM HYDROXIDE
     Dosage: 360 ML (FCO), 2 BOTTLES EVERY 30 DAYS FOR 30 DAYS
     Route: 048
  11. LEVOTHYROXINE [Concomitant]
     Active Substance: LEVOTHYROXINE
     Dosage: 100 MCG, 1 TABLET EVERY 24 HOURS FOR 30 DAYS
     Route: 048
  12. PREDNISOLONE [Concomitant]
     Active Substance: PREDNISOLONE
     Dosage: 1 TABLET EVERY 24 HOURS FOR 7 DAYS
     Route: 048

REACTIONS (1)
  - Pneumonia [Fatal]

NARRATIVE: CASE EVENT DATE: 20230922
